FAERS Safety Report 5247298-8 (Version None)
Quarter: 2007Q1

REPORT INFORMATION
  Report Type: 
  Country: None (occurrence: None)
  Receive Date: 20070227
  Receipt Date: 20070213
  Transmission Date: 20070707
  Serious: Yes (Other)
  Sender: FDA-Public Use
  Company Number: PHFR2007GB00779

PATIENT
  Age: 79 Year
  Sex: Female

DRUGS (9)
  1. ERYTHROMYCIN (NGX) [Suspect]
  2. TEGRETOL [Suspect]
     Dosage: 600MG/DAY
  3. ATORVASTATIN [Concomitant]
  4. CARDURA [Concomitant]
     Route: 065
  5. DOXAZOSIN MESYLATE [Concomitant]
     Route: 065
  6. IRBESARTAN [Concomitant]
     Route: 065
  7. NIFEDIPINE [Concomitant]
     Route: 065
  8. PLANTAGO OVATA [Concomitant]
     Route: 065
  9. RAMIPRIL [Concomitant]
     Route: 065

REACTIONS (7)
  - AMNESIA [None]
  - CELLULITIS [None]
  - CONFUSIONAL STATE [None]
  - DIARRHOEA [None]
  - FAECAL INCONTINENCE [None]
  - MALAISE [None]
  - URINARY TRACT INFECTION [None]
